FAERS Safety Report 14331799 (Version 5)
Quarter: 2018Q1

REPORT INFORMATION
  Report Type: Report from Study
  Country: BR (occurrence: BR)
  Receive Date: 20171228
  Receipt Date: 20180129
  Transmission Date: 20180509
  Serious: Yes (Death, Life-Threatening, Hospitalization, Other)
  Sender: FDA-Public Use
  Company Number: PHHY2017BR195037

PATIENT
  Age: 35 Year
  Sex: Female
  Weight: 49 kg

DRUGS (2)
  1. VOTRIENT [Suspect]
     Active Substance: PAZOPANIB HYDROCHLORIDE
     Indication: METASTATIC RENAL CELL CARCINOMA
     Dosage: 2 DF, QD
     Route: 048
     Dates: start: 20171214
  2. MORPHINE [Concomitant]
     Active Substance: MORPHINE
     Indication: PAIN
     Dosage: 1 DF, Q4H
     Route: 048
     Dates: start: 201708

REACTIONS (11)
  - Cerebrovascular accident [Recovering/Resolving]
  - Neoplasm [Fatal]
  - Coma [Unknown]
  - Hypoaesthesia [Unknown]
  - Dysphagia [Unknown]
  - Speech disorder [Not Recovered/Not Resolved]
  - Eating disorder [Not Recovered/Not Resolved]
  - Product use issue [Unknown]
  - Metastatic renal cell carcinoma [Fatal]
  - Gait disturbance [Not Recovered/Not Resolved]
  - Malaise [Not Recovered/Not Resolved]

NARRATIVE: CASE EVENT DATE: 20171219
